FAERS Safety Report 5266924-0 (Version None)
Quarter: 2007Q1

REPORT INFORMATION
  Report Type: 
  Country: None (occurrence: None)
  Receive Date: 20061213
  Receipt Date: 20030312
  Transmission Date: 20070707
  Serious: Yes (Life-Threatening, Hospitalization)
  Sender: FDA-Public Use
  Company Number: 2003UW03411

PATIENT
  Age: 53 Year
  Sex: Male

DRUGS (4)
  1. TAMOXIFEN CITRATE [Suspect]
     Indication: GLIOBLASTOMA MULTIFORME
     Dosage: 240 MG DAILY PO
     Route: 048
     Dates: start: 20011030, end: 20011210
  2. PROPYLTHIOURACIL [Suspect]
     Indication: GLIOBLASTOMA MULTIFORME
     Dates: start: 20011030, end: 20011210
  3. PROPYLTHIOURACIL [Suspect]
     Indication: HYPOTHYROIDISM
     Dates: start: 20011030, end: 20011210
  4. RADIATION [Concomitant]

REACTIONS (2)
  - DEEP VEIN THROMBOSIS [None]
  - PULMONARY EMBOLISM [None]
